FAERS Safety Report 7834116-4 (Version None)
Quarter: 2011Q4

REPORT INFORMATION
  Report Type: 
  Country: None (occurrence: None)
  Receive Date: 20111024
  Receipt Date: 20111010
  Transmission Date: 20120403
  Serious: Yes (Hospitalization, Other)
  Sender: FDA-Public Use
  Company Number: PHHY2011FR90350

PATIENT
  Age: 17 Year
  Sex: Female

DRUGS (10)
  1. CEFTRIAXONE [Suspect]
     Indication: MALARIA
     Dosage: 2 G, UNK
     Route: 042
     Dates: start: 20110906, end: 20110907
  2. METHYLPREDNISOLONE [Concomitant]
     Dosage: 60 MG, DAILY
     Dates: start: 20110927
  3. ARTESUNATE [Suspect]
     Indication: MALARIA
     Dosage: TOTAL OF 120 MG IN 3 INFUSIONS
     Route: 042
     Dates: start: 20110907, end: 20110908
  4. PLATELETS [Concomitant]
  5. ACETAMINOPHEN [Suspect]
     Indication: MALARIA
     Dosage: UNK
     Dates: start: 20110906, end: 20110907
  6. NOREPINEPHRINE BITARTRATE [Concomitant]
     Dosage: UNK
     Dates: end: 20110908
  7. RIAMET [Suspect]
     Indication: PLASMODIUM FALCIPARUM INFECTION
     Dosage: 4 DF, DAILY
     Route: 048
     Dates: start: 20110906, end: 20110907
  8. RIAMET [Suspect]
     Dosage: UNK
     Route: 048
     Dates: start: 20110909, end: 20110912
  9. PRIMPERAN TAB [Suspect]
     Indication: MALARIA
     Dosage: UNK
     Dates: start: 20110906
  10. ACETAMINOPHEN [Suspect]
     Dosage: UNK
     Dates: start: 20110909, end: 20110915

REACTIONS (9)
  - ASTHENIA [None]
  - HAEMODYNAMIC INSTABILITY [None]
  - HAEMOLYTIC ANAEMIA [None]
  - HYPOTENSION [None]
  - HAPTOGLOBIN DECREASED [None]
  - PYREXIA [None]
  - TACHYPNOEA [None]
  - HYPOCALCAEMIA [None]
  - HYPOPHOSPHATAEMIA [None]
